FAERS Safety Report 13819153 (Version 1)
Quarter: 2017Q3

REPORT INFORMATION
  Report Type: Spontaneous
  Country: US (occurrence: US)
  Receive Date: 20170731
  Receipt Date: 20170731
  Transmission Date: 20171127
  Serious: No
  Sender: FDA-Public Use
  Company Number: None

PATIENT
  Age: 52 Year
  Sex: Male
  Weight: 62.1 kg

DRUGS (11)
  1. ASPIRIN EC [Concomitant]
     Active Substance: ASPIRIN
  2. NIFEDIPINE. [Concomitant]
     Active Substance: NIFEDIPINE
  3. PREDNISONE. [Suspect]
     Active Substance: PREDNISONE
     Indication: IMMUNOSUPPRESSION
     Route: 048
     Dates: start: 20170310
  4. ISONIAZID. [Concomitant]
     Active Substance: ISONIAZID
  5. DOCQLACE [Concomitant]
     Active Substance: DOCUSATE SODIUM
  6. METOPROLOL TARTRATE. [Concomitant]
     Active Substance: METOPROLOL TARTRATE
  7. FAMOTIDINE. [Concomitant]
     Active Substance: FAMOTIDINE
  8. TACROLIMUS. [Concomitant]
     Active Substance: TACROLIMUS
  9. SULFAMETHOXAZOLE/TMP SS [Concomitant]
  10. VALGANCICLOVIR. [Concomitant]
     Active Substance: VALGANCICLOVIR
  11. MYCOPHENOLIC ACID DR [Concomitant]

REACTIONS (2)
  - Alopecia [None]
  - Rash [None]

NARRATIVE: CASE EVENT DATE: 20170731
